FAERS Safety Report 4931373-9 (Version None)
Quarter: 2006Q1

REPORT INFORMATION
  Report Type: 
  Country: None (occurrence: None)
  Receive Date: 20060303
  Receipt Date: 20050610
  Transmission Date: 20060701
  Serious: Yes (Hospitalization)
  Sender: FDA-Public Use
  Company Number: PHHO2005CN09155

PATIENT
  Age: 69 Year
  Sex: Male
  Weight: 74 kg

DRUGS (3)
  1. NATEGLINIDE [Suspect]
     Indication: GLUCOSE TOLERANCE IMPAIRED
     Dosage: LEVEL 1
     Route: 048
     Dates: start: 20021217
  2. NATEGLINIDE [Suspect]
     Dosage: LEVEL 2
     Route: 048
  3. VALSARTAN [Suspect]
     Indication: CARDIOVASCULAR DISORDER
     Dosage: 80 MG, QD
     Route: 048
     Dates: start: 20021217

REACTIONS (9)
  - ABDOMINAL PAIN UPPER [None]
  - GASTRITIS [None]
  - GASTRITIS EROSIVE [None]
  - INTESTINAL OPERATION [None]
  - LAPAROTOMY [None]
  - METASTASES TO LUNG [None]
  - NON-HODGKIN'S LYMPHOMA [None]
  - SMALL INTESTINE CARCINOMA [None]
  - VOMITING [None]
